FAERS Safety Report 7383202-4 (Version None)
Quarter: 2011Q1

REPORT INFORMATION
  Report Type: 
  Country: None (occurrence: None)
  Receive Date: 20110330
  Receipt Date: 20110316
  Transmission Date: 20110831
  Serious: Yes (Hospitalization, Other)
  Sender: FDA-Public Use
  Company Number: US-ELI_LILLY_AND_COMPANY-US201103005262

PATIENT
  Sex: Female

DRUGS (1)
  1. FORTEO [Suspect]
     Dosage: 20 UG, DAILY (1/D)
     Dates: start: 20100101, end: 20101201

REACTIONS (5)
  - EXPLORATORY OPERATION [None]
  - PANCREATITIS [None]
  - LIVER DISORDER [None]
  - URINE COLOUR ABNORMAL [None]
  - WEIGHT DECREASED [None]
